FAERS Safety Report 15044012 (Version 1)
Quarter: 2018Q2

REPORT INFORMATION
  Report Type: Spontaneous
  Country: BR (occurrence: BR)
  Receive Date: 20180621
  Receipt Date: 20180621
  Transmission Date: 20180711
  Serious: Yes (Hospitalization, Other)
  Sender: FDA-Public Use
  Company Number: BR-GLAXOSMITHKLINE-BR2018GSK107901

PATIENT
  Sex: Female
  Weight: 14 kg

DRUGS (17)
  1. MONTELAIR [Suspect]
     Active Substance: MONTELUKAST SODIUM
     Indication: ASTHMA
     Dosage: 1 DF, QD
     Route: 055
  2. SERETIDE [Suspect]
     Active Substance: FLUTICASONE PROPIONATE\SALMETEROL XINAFOATE
     Indication: ASTHMA
  3. SERETIDE [Suspect]
     Active Substance: FLUTICASONE PROPIONATE\SALMETEROL XINAFOATE
     Indication: BRONCHOSPASM
  4. PREDNISOLONE. [Suspect]
     Active Substance: PREDNISOLONE
     Indication: ASTHMA
     Dosage: 3 ML, BID
     Route: 055
  5. PREDNISOLONE. [Suspect]
     Active Substance: PREDNISOLONE
     Indication: BRONCHOSPASM
  6. SYMBICORT [Suspect]
     Active Substance: BUDESONIDE\FORMOTEROL FUMARATE DIHYDRATE
     Indication: ASTHMA
     Dosage: 2 DF, BID
  7. CLENIL [Suspect]
     Active Substance: BECLOMETHASONE DIPROPIONATE
     Indication: ATELECTASIS
     Dosage: 2 DF, BID
     Route: 055
  8. CLENIL [Suspect]
     Active Substance: BECLOMETHASONE DIPROPIONATE
     Indication: ASTHMA
  9. SALBUTAMOL [Suspect]
     Active Substance: ALBUTEROL
     Indication: ATELECTASIS
     Dosage: 4 DF, QID
     Route: 055
  10. SINGULAIR [Suspect]
     Active Substance: MONTELUKAST SODIUM
     Indication: BRONCHOSPASM
  11. MONTELAIR [Suspect]
     Active Substance: MONTELUKAST SODIUM
     Indication: BRONCHOSPASM
  12. SERETIDE [Suspect]
     Active Substance: FLUTICASONE PROPIONATE\SALMETEROL XINAFOATE
     Indication: ATELECTASIS
     Dosage: 1 DF, BID
  13. AZITROMICIN [Suspect]
     Active Substance: AZITHROMYCIN
     Indication: ASTHMA
     Dosage: 13.5 ML, QD
     Route: 055
  14. SALBUTAMOL [Suspect]
     Active Substance: ALBUTEROL
     Indication: ASTHMA
  15. SINGULAIR [Suspect]
     Active Substance: MONTELUKAST SODIUM
     Indication: ASTHMA
     Dosage: 1 DF, QD
     Route: 055
  16. SYMBICORT [Suspect]
     Active Substance: BUDESONIDE\FORMOTEROL FUMARATE DIHYDRATE
     Indication: BRONCHOSPASM
  17. AZITROMICIN [Suspect]
     Active Substance: AZITHROMYCIN
     Indication: BRONCHOSPASM

REACTIONS (3)
  - Product use issue [Unknown]
  - Drug prescribing error [Recovered/Resolved]
  - Hospitalisation [Unknown]
